FAERS Safety Report 4272835-X (Version None)
Quarter: 2004Q1

REPORT INFORMATION
  Report Type: 
  Country: None (occurrence: None)
  Receive Date: 20040114
  Receipt Date: 20040108
  Transmission Date: 20041129
  Serious: Yes (Hospitalization)
  Sender: FDA-Public Use
  Company Number: 2004001338

PATIENT
  Age: 56 Year
  Weight: 76.2043 kg

DRUGS (12)
  1. LIPITOR [Suspect]
     Indication: HYPERCHOLESTEROLAEMIA
     Dosage: 10 MG (DAILY)
     Dates: start: 19980101, end: 20031219
  2. GEMCITABINE HYDROCHLORIDE (GEMCITABINE HYDROCHLORIDE) [Suspect]
     Indication: ILL-DEFINED DISORDER
     Dosage: INTRAVENOUS
     Route: 042
     Dates: start: 20030523
  3. DOCETAXEL (DOCETAXEL) [Suspect]
     Indication: ILL-DEFINED DISORDER
     Dosage: INTRAVENOUS
     Route: 042
     Dates: start: 20030523
  4. INSULIN HUMAN INJECTION, ISOPHANE (INSULIN HUMAN INJECTION, ISOPHANE) [Concomitant]
  5. CELECOXIB (CELECOXIB) [Concomitant]
  6. BENAZEPRIL HYDROCHLORIDE (BENAZEPRIL HYDROCHLORDE) [Concomitant]
  7. METOPROLOL SUCCINATE [Concomitant]
  8. POTASSIUM CHLORIDE [Concomitant]
  9. FUROSEMIDE [Concomitant]
  10. METFORMIN HCL [Concomitant]
  11. PANTOPRAZOLE (PANTOPRAZOLE) [Concomitant]
  12. DOLASETRON MESILATE (DOLASETRON MESILATE) [Concomitant]

REACTIONS (4)
  - CELLULITIS [None]
  - NAUSEA [None]
  - VASCULITIS [None]
  - VOMITING [None]
